FAERS Safety Report 7397501-3 (Version None)
Quarter: 2011Q2

REPORT INFORMATION
  Report Type: 
  Country: None (occurrence: None)
  Receive Date: 20110406
  Receipt Date: 20110324
  Transmission Date: 20111010
  Serious: Yes (Other)
  Sender: FDA-Public Use
  Company Number: PHHY2011IT24634

PATIENT
  Age: 29 Year
  Sex: Female

DRUGS (3)
  1. METHYLPREDNISOLONE [Suspect]
     Indication: LIVER TRANSPLANT
     Dosage: 20 MG, QD
     Dates: end: 20050101
  2. TACROLIMUS [Suspect]
     Indication: LIVER TRANSPLANT
     Dosage: 2 MG, BID
     Dates: end: 20060101
  3. SIROLIMUS [Suspect]
     Indication: LIVER TRANSPLANT
     Dosage: 6 MG, QD
     Dates: end: 20080601

REACTIONS (9)
  - CENTRAL NERVOUS SYSTEM LESION [None]
  - CEREBRAL ARTERY OCCLUSION [None]
  - PARAESTHESIA [None]
  - CEREBRAL INFARCTION [None]
  - NERVOUS SYSTEM DISORDER [None]
  - HYPERTROPHY [None]
  - HYPOKINESIA [None]
  - MOYAMOYA DISEASE [None]
  - ASTHENIA [None]
